FAERS Safety Report 8006964-1 (Version None)
Quarter: 2011Q4

REPORT INFORMATION
  Report Type: 
  Country: None (occurrence: None)
  Receive Date: 20111227
  Receipt Date: 20111219
  Transmission Date: 20120403
  Serious: Yes (Hospitalization, Other)
  Sender: FDA-Public Use
  Company Number: JP-JNJFOC-20110704639

PATIENT
  Sex: Male

DRUGS (26)
  1. OLOPATADINE HCL [Concomitant]
     Indication: ACUTE LYMPHOCYTIC LEUKAEMIA
     Route: 048
     Dates: start: 20110616, end: 20110620
  2. CYTARABINE [Concomitant]
     Route: 041
     Dates: start: 20110614, end: 20110619
  3. CYTARABINE [Concomitant]
     Route: 041
     Dates: start: 20110607, end: 20110612
  4. CYCLOPHOSPHAMIDE [Concomitant]
     Route: 041
  5. METHOTREXATE [Suspect]
     Route: 065
     Dates: start: 20110607, end: 20110607
  6. VFEND [Concomitant]
     Indication: FEBRILE NEUTROPENIA
     Route: 048
     Dates: start: 20110608
  7. OLOPATADINE HCL [Concomitant]
     Indication: DRUG ERUPTION
     Route: 048
     Dates: start: 20110616, end: 20110620
  8. CYCLOPHOSPHAMIDE [Concomitant]
     Indication: ACUTE LYMPHOCYTIC LEUKAEMIA
     Route: 041
     Dates: start: 20110614, end: 20110614
  9. HYDROCORTISONE SODIUM PHOSPHATE [Concomitant]
     Route: 065
     Dates: start: 20110607, end: 20110607
  10. URSO 250 [Concomitant]
     Indication: LIVER DISORDER
     Route: 048
     Dates: start: 20110322
  11. CYTARABINE [Suspect]
     Indication: ACUTE LYMPHOCYTIC LEUKAEMIA
     Route: 065
     Dates: start: 20110614, end: 20110614
  12. HYDROCORTISONE SODIUM PHOSPHATE [Concomitant]
     Indication: ACUTE LYMPHOCYTIC LEUKAEMIA
     Route: 065
     Dates: start: 20110614, end: 20110614
  13. IMMUNE GLOBULIN (HUMAN) [Suspect]
     Indication: FEBRILE NEUTROPENIA
     Route: 042
  14. CYTARABINE [Suspect]
     Route: 065
     Dates: start: 20110607, end: 20110607
  15. VANCOMYCIN HYCHLORIDE [Concomitant]
     Indication: FEBRILE NEUTROPENIA
     Route: 048
     Dates: start: 20110621, end: 20110714
  16. LEUKERIN [Concomitant]
     Indication: ACUTE LYMPHOCYTIC LEUKAEMIA
     Route: 048
     Dates: start: 20110614, end: 20110620
  17. MAXIPIME [Concomitant]
     Indication: FEBRILE NEUTROPENIA
     Route: 041
     Dates: start: 20110608, end: 20110616
  18. NEUTROGIN [Concomitant]
     Indication: ACUTE LYMPHOCYTIC LEUKAEMIA
     Route: 042
  19. CYTARABINE [Concomitant]
     Route: 041
  20. PINORUBIN [Concomitant]
     Indication: ACUTE LYMPHOCYTIC LEUKAEMIA
     Route: 041
     Dates: start: 20110607, end: 20110608
  21. DORIPENEM MONOHYDRATE [Suspect]
     Indication: FEBRILE NEUTROPENIA
     Route: 041
     Dates: start: 20110616, end: 20110623
  22. METHOTREXATE [Suspect]
     Indication: ACUTE LYMPHOCYTIC LEUKAEMIA
     Route: 065
     Dates: start: 20110614, end: 20110614
  23. VFEND [Concomitant]
     Indication: ACUTE LYMPHOCYTIC LEUKAEMIA
     Route: 048
     Dates: start: 20110608
  24. ALKERAN [Concomitant]
     Indication: ACUTE LYMPHOCYTIC LEUKAEMIA
     Route: 048
     Dates: start: 20110607, end: 20110620
  25. PREDNISOLONE [Concomitant]
     Indication: ACUTE LYMPHOCYTIC LEUKAEMIA
     Route: 048
     Dates: start: 20110604, end: 20110606
  26. CYCLOPHOSPHAMIDE [Concomitant]
     Route: 041
     Dates: start: 20110607, end: 20110607

REACTIONS (3)
  - POSTERIOR REVERSIBLE ENCEPHALOPATHY SYNDROME [None]
  - MUSCLE SPASMS [None]
  - DYSLALIA [None]
